FAERS Safety Report 17741671 (Version 1)
Quarter: 2020Q2

REPORT INFORMATION
  Report Type: Report from Study
  Country: DE (occurrence: DE)
  Receive Date: 20200504
  Receipt Date: 20200504
  Transmission Date: 20200714
  Serious: Yes (Hospitalization, Other)
  Sender: FDA-Public Use
  Company Number: DE-NOVOPROD-724727

PATIENT
  Age: 64 Year
  Sex: Male
  Weight: 88.8 kg

DRUGS (2)
  1. SEMAGLUTIDE D 2.4 MG [Suspect]
     Active Substance: SEMAGLUTIDE
     Indication: TYPE 2 DIABETES MELLITUS
     Dosage: 2.4 MG, QD
     Route: 048
     Dates: start: 20200213, end: 20200311
  2. SEMAGLUTIDE 7 MG [Suspect]
     Active Substance: SEMAGLUTIDE
     Indication: TYPE 2 DIABETES MELLITUS
     Dosage: 7 MG, QD
     Route: 048
     Dates: start: 20200312, end: 20200315

REACTIONS (1)
  - Cholecystitis acute [Recovered/Resolved]

NARRATIVE: CASE EVENT DATE: 20200319
